FAERS Safety Report 17787944 (Version 2)
Quarter: 2020Q3

REPORT INFORMATION
  Report Type: Spontaneous
  Country: DE (occurrence: DE)
  Receive Date: 20200514
  Receipt Date: 20200727
  Transmission Date: 20201102
  Serious: No
  Sender: FDA-Public Use
  Company Number: DE-JNJFOC-20200509507

PATIENT
  Sex: Male

DRUGS (1)
  1. STELARA [Suspect]
     Active Substance: USTEKINUMAB
     Indication: PRODUCT USED FOR UNKNOWN INDICATION
     Route: 042

REACTIONS (4)
  - Myoclonus [Recovering/Resolving]
  - Liver function test abnormal [Unknown]
  - Somnolence [Recovering/Resolving]
  - Paraesthesia [Recovering/Resolving]
